FAERS Safety Report 13557051 (Version 2)
Quarter: 2017Q3

REPORT INFORMATION
  Report Type: Spontaneous
  Country: RU (occurrence: RU)
  Receive Date: 20170517
  Receipt Date: 20170727
  Transmission Date: 20171127
  Serious: Yes (Hospitalization)
  Sender: FDA-Public Use
  Company Number: RU-BAYER-2017-067465

PATIENT
  Sex: Female

DRUGS (3)
  1. YAZ [Suspect]
     Active Substance: DROSPIRENONE\ETHINYL ESTRADIOL
     Dosage: UNK
     Dates: start: 201502
  2. XARELTO [Suspect]
     Active Substance: RIVAROXABAN
  3. DETRALEX [Concomitant]
     Active Substance: DIOSMIN\HESPERIDIN

REACTIONS (7)
  - Haematuria [Recovered/Resolved]
  - Headache [None]
  - Cystitis [Recovered/Resolved]
  - Body temperature increased [None]
  - Diarrhoea [None]
  - Cystitis [Recovered/Resolved]
  - Food poisoning [None]

NARRATIVE: CASE EVENT DATE: 201703
